FAERS Safety Report 17900527 (Version 1)
Quarter: 2020Q2

REPORT INFORMATION
  Report Type: Spontaneous
  Country: CN (occurrence: CN)
  Receive Date: 20200616
  Receipt Date: 20200616
  Transmission Date: 20200714
  Serious: Yes (Other)
  Sender: FDA-Public Use
  Company Number: ALC2020CN004414

PATIENT
  Age: 39 Year
  Sex: Male

DRUGS (2)
  1. FLUORESCITE [Suspect]
     Active Substance: FLUORESCEIN SODIUM
     Indication: FLUORESCENCE ANGIOGRAM NORMAL
     Dosage: 0.500 G, QD
     Route: 042
     Dates: start: 20200527, end: 20200527
  2. INDOCYANINE GREEN. [Concomitant]
     Active Substance: INDOCYANINE GREEN
     Indication: FLUORESCENCE ANGIOGRAM
     Dosage: 25 MG, QD
     Route: 042
     Dates: start: 20200527, end: 20200527

REACTIONS (1)
  - Rash [Recovered/Resolved]

NARRATIVE: CASE EVENT DATE: 20200527
